FAERS Safety Report 4929282-4 (Version None)
Quarter: 2006Q1

REPORT INFORMATION
  Report Type: 
  Country: None (occurrence: None)
  Receive Date: 20060223
  Receipt Date: 20060201
  Transmission Date: 20060701
  Serious: Yes (Hospitalization)
  Sender: FDA-Public Use
  Company Number: US200601002105

PATIENT
  Age: 69 Year
  Sex: Female

DRUGS (4)
  1. FORTEO [Suspect]
     Indication: OSTEOPOROSIS
     Dates: start: 20050601, end: 20051209
  2. FORTEO [Suspect]
     Indication: OSTEOPOROSIS
     Dates: start: 20050115
  3. FORTEO [Concomitant]
  4. HORMONES AND RELATED AGENTS [Concomitant]

REACTIONS (7)
  - ADVERSE DRUG REACTION [None]
  - HIP ARTHROPLASTY [None]
  - IMPAIRED HEALING [None]
  - LOWER LIMB FRACTURE [None]
  - PHARMACEUTICAL PRODUCT COMPLAINT [None]
  - POST PROCEDURAL COMPLICATION [None]
  - TREATMENT NONCOMPLIANCE [None]
